FAERS Safety Report 19986063 (Version 1)
Quarter: 2021Q4

REPORT INFORMATION
  Report Type: Spontaneous
  Country: IT (occurrence: IT)
  Receive Date: 20211022
  Receipt Date: 20211022
  Transmission Date: 20220303
  Serious: Yes (Other)
  Sender: FDA-Public Use
  Company Number: IT-ABBVIE-21K-083-4129751-00

PATIENT
  Age: 16 Year
  Sex: Female

DRUGS (8)
  1. VALPROATE SODIUM [Suspect]
     Active Substance: VALPROATE SODIUM
     Indication: Drug abuse
     Route: 048
     Dates: start: 20190426, end: 20190426
  2. CARBAMAZEPINE [Suspect]
     Active Substance: CARBAMAZEPINE
     Indication: Drug abuse
     Route: 048
     Dates: start: 20190426, end: 20190426
  3. RISPERIDONE [Suspect]
     Active Substance: RISPERIDONE
     Indication: Drug abuse
     Route: 048
     Dates: start: 20190426, end: 20190426
  4. RISPERIDONE [Suspect]
     Active Substance: RISPERIDONE
     Route: 048
  5. OLANZAPINE [Suspect]
     Active Substance: OLANZAPINE
     Indication: Drug abuse
     Route: 048
     Dates: start: 20190426, end: 20190426
  6. LITHIUM [Suspect]
     Active Substance: LITHIUM
     Indication: Drug abuse
     Route: 048
     Dates: start: 20190426, end: 20190426
  7. LORAZEPAM [Suspect]
     Active Substance: LORAZEPAM
     Indication: Drug abuse
     Route: 048
     Dates: start: 20190426, end: 20190426
  8. PROMAZINE HYDROCHLORIDE [Suspect]
     Active Substance: PROMAZINE HYDROCHLORIDE
     Indication: Drug abuse
     Dosage: 50 GTT DROPS
     Route: 048
     Dates: start: 20190426, end: 20190426

REACTIONS (4)
  - Product use issue [Recovering/Resolving]
  - Speech disorder developmental [Recovering/Resolving]
  - Sopor [Recovering/Resolving]
  - Intentional product misuse [Unknown]

NARRATIVE: CASE EVENT DATE: 20190426
